FAERS Safety Report 11871431 (Version 1)
Quarter: 2015Q4

REPORT INFORMATION
  Report Type: Spontaneous
  Country: US (occurrence: None)
  Receive Date: 20151224
  Receipt Date: 20151224
  Transmission Date: 20160305
  Serious: Yes (Hospitalization)
  Sender: FDA-Public Use
  Company Number: None

PATIENT
  Age: 65 Year
  Sex: Male

DRUGS (16)
  1. NEBULIZING SOLUTION [Concomitant]
  2. ASCORBIC ACID. [Concomitant]
     Active Substance: ASCORBIC ACID
  3. MIDODRINE [Concomitant]
     Active Substance: MIDODRINE
  4. ATORVASTATIN [Concomitant]
     Active Substance: ATORVASTATIN
  5. BECLOMETHASONE [Concomitant]
     Active Substance: BECLOMETHASONE
  6. MULTIVITAMIN [Concomitant]
     Active Substance: VITAMINS
  7. MAGNESIUM OXIDE. [Concomitant]
     Active Substance: MAGNESIUM OXIDE
  8. ALBUTEROL. [Concomitant]
     Active Substance: ALBUTEROL
  9. FAMOTIDINE. [Concomitant]
     Active Substance: FAMOTIDINE
  10. ZINC OXIDE. [Concomitant]
     Active Substance: ZINC OXIDE
  11. ZOLPIDEM [Concomitant]
     Active Substance: ZOLPIDEM\ZOLPIDEM TARTRATE
  12. NIVOLUMAB [Suspect]
     Active Substance: NIVOLUMAB
     Indication: NEOPLASM MALIGNANT
     Route: 042
     Dates: end: 20150821
  13. ASPIRIN. [Concomitant]
     Active Substance: ASPIRIN
  14. ONDNSETRON [Concomitant]
  15. DRONABINOL. [Concomitant]
     Active Substance: DRONABINOL
  16. FLUDROCORTISONE [Concomitant]
     Active Substance: FLUDROCORTISONE

REACTIONS (4)
  - Pneumonitis [None]
  - Pyrexia [None]
  - Ventricular hypertrophy [None]
  - Failure to thrive [None]

NARRATIVE: CASE EVENT DATE: 20150803
